FAERS Safety Report 10228561 (Version 1)
Quarter: 2014Q2

REPORT INFORMATION
  Report Type: Spontaneous
  Country: DE (occurrence: DE)
  Receive Date: 20140610
  Receipt Date: 20140610
  Transmission Date: 20141212
  Serious: Yes (Other)
  Sender: FDA-Public Use
  Company Number: DE-JNJFOC-20140603188

PATIENT
  Sex: Male

DRUGS (1)
  1. IBRUTINIB [Suspect]
     Indication: MANTLE CELL LYMPHOMA RECURRENT
     Route: 048
     Dates: start: 2014

REACTIONS (1)
  - Lymphoma [Unknown]
